FAERS Safety Report 4698576-2 (Version None)
Quarter: 2005Q2

REPORT INFORMATION
  Report Type: 
  Country: None (occurrence: None)
  Receive Date: 20050622
  Receipt Date: 20050610
  Transmission Date: 20051028
  Serious: Yes (Other)
  Sender: FDA-Public Use
  Company Number: 2005SP001184

PATIENT
  Age: 45 Year
  Sex: Male
  Weight: 104.3273 kg

DRUGS (3)
  1. LUNESTA [Suspect]
     Dosage: 3 MG; HS, ORAL
     Route: 048
     Dates: start: 20050601, end: 20050601
  2. KEPPRA [Concomitant]
  3. XANAX [Concomitant]

REACTIONS (1)
  - GRAND MAL CONVULSION [None]
